FAERS Safety Report 13184976 (Version 3)
Quarter: 2018Q1

REPORT INFORMATION
  Report Type: Report from Study
  Country: US (occurrence: US)
  Receive Date: 20170203
  Receipt Date: 20180122
  Transmission Date: 20180508
  Serious: Yes (Other)
  Sender: FDA-Public Use
  Company Number: US-ALEXION PHARMACEUTICALS INC.-A201700859

PATIENT
  Sex: Male

DRUGS (2)
  1. SOLIRIS [Suspect]
     Active Substance: ECULIZUMAB
     Indication: ATYPICAL HAEMOLYTIC URAEMIC SYNDROME
     Dosage: UNK
     Route: 042
  2. SOLIRIS [Suspect]
     Active Substance: ECULIZUMAB
     Dosage: UNK
     Route: 065

REACTIONS (12)
  - Inflammatory bowel disease [Unknown]
  - Gallbladder enlargement [Unknown]
  - Oropharyngeal pain [Unknown]
  - Migraine [Unknown]
  - Viral infection [Unknown]
  - Abdominal pain upper [Unknown]
  - Laboratory test abnormal [Unknown]
  - Device issue [Unknown]
  - Ill-defined disorder [Unknown]
  - Fatigue [Unknown]
  - Headache [Unknown]
  - Sinus disorder [Unknown]
